FAERS Safety Report 7978865-6 (Version None)
Quarter: 2011Q4

REPORT INFORMATION
  Report Type: 
  Country: None (occurrence: None)
  Receive Date: 20111214
  Receipt Date: 20111202
  Transmission Date: 20120403
  Serious: Yes (Death)
  Sender: FDA-Public Use
  Company Number: US-BAXTER-2011BH036224

PATIENT
  Sex: Male

DRUGS (1)
  1. DIANEAL [Suspect]
     Indication: PERITONEAL DIALYSIS
     Route: 033
     Dates: end: 20111107

REACTIONS (4)
  - ACQUIRED IMMUNODEFICIENCY SYNDROME [None]
  - DEHYDRATION [None]
  - HYPOTENSION [None]
  - HYPOPHAGIA [None]
